FAERS Safety Report 4708350-6 (Version None)
Quarter: 2005Q3

REPORT INFORMATION
  Report Type: 
  Country: None (occurrence: None)
  Receive Date: 20050707
  Receipt Date: 20050525
  Transmission Date: 20060218
  Serious: Yes (Life-Threatening, Hospitalization)
  Sender: FDA-Public Use
  Company Number: NLWYE693325MAY05

PATIENT
  Sex: Female

DRUGS (7)
  1. ENBREL [Suspect]
     Indication: RHEUMATOID ARTHRITIS
     Dosage: UNKNOWN
     Route: 058
     Dates: start: 20040527, end: 20050504
  2. FOSAMAX [Concomitant]
  3. OMEPRAZOLE [Concomitant]
  4. CALCICHEW [Concomitant]
  5. PREDNISOLONE [Concomitant]
  6. NAPROXEN [Concomitant]
  7. METAMUCIL [Concomitant]

REACTIONS (1)
  - AGRANULOCYTOSIS [None]
